FAERS Safety Report 16072957 (Version 2)
Quarter: 2019Q1

REPORT INFORMATION
  Report Type: Spontaneous
  Country: DE (occurrence: DE)
  Receive Date: 20190314
  Receipt Date: 20190321
  Transmission Date: 20190418
  Serious: Yes (Hospitalization, Other)
  Sender: FDA-Public Use
  Company Number: DE-MYLANLABS-2019M1023056

PATIENT
  Age: 88 Year
  Sex: Female
  Weight: 80 kg

DRUGS (2)
  1. MEMANTINE. [Suspect]
     Active Substance: MEMANTINE
     Indication: COGNITIVE DISORDER
  2. MEMANTINE. [Suspect]
     Active Substance: MEMANTINE
     Indication: DEMENTIA
     Dosage: 20 MILLIGRAM
     Route: 048

REACTIONS (8)
  - Dementia [Unknown]
  - Coordination abnormal [Unknown]
  - Hallucination [Unknown]
  - Muscle twitching [Unknown]
  - Confusional state [Unknown]
  - Cystitis noninfective [Unknown]
  - Somnolence [Unknown]
  - Condition aggravated [Unknown]

NARRATIVE: CASE EVENT DATE: 20180909
